FAERS Safety Report 18437885 (Version 1)
Quarter: 2020Q4

REPORT INFORMATION
  Report Type: Spontaneous
  Country: JP (occurrence: JP)
  Receive Date: 20201028
  Receipt Date: 20201028
  Transmission Date: 20210114
  Serious: Yes (Other)
  Sender: FDA-Public Use
  Company Number: JP-UCBSA-2020040617

PATIENT
  Age: 37 Year
  Sex: Male
  Weight: 31 kg

DRUGS (12)
  1. L CARTIN [Concomitant]
     Active Substance: LEVOCARNITINE HYDROCHLORIDE
     Indication: PRODUCT USED FOR UNKNOWN INDICATION
     Dosage: 2 GRAM DAILY
  2. CARBAMAZEPINE. [Concomitant]
     Active Substance: CARBAMAZEPINE
     Dosage: 400 MG DAILY
     Dates: start: 20200610
  3. MAGNESIUM OXIDE. [Concomitant]
     Active Substance: MAGNESIUM OXIDE
     Indication: PRODUCT USED FOR UNKNOWN INDICATION
     Dosage: 1 GRAM DAILY
  4. VIMPAT [Suspect]
     Active Substance: LACOSAMIDE
     Indication: PARTIAL SEIZURES
     Dosage: 50 MILLIGRAM, 2X/DAY (BID)
     Route: 048
     Dates: start: 20200401, end: 2020
  5. VIMPAT [Suspect]
     Active Substance: LACOSAMIDE
     Dosage: 120 MG DAILY
     Route: 048
     Dates: start: 20200924
  6. CARBAMAZEPINE. [Concomitant]
     Active Substance: CARBAMAZEPINE
     Indication: PRODUCT USED FOR UNKNOWN INDICATION
     Dosage: 600 MG DAILY
  7. SODIUM PICOSULFATE [Concomitant]
     Active Substance: SODIUM PICOSULFATE
     Indication: PRODUCT USED FOR UNKNOWN INDICATION
     Dosage: 0.5 GRAM DAILY
  8. DEPAKENE [VALPROATE SODIUM] [Concomitant]
     Active Substance: VALPROATE SODIUM
     Dosage: 8 MG DAILY
     Route: 048
     Dates: start: 20200401
  9. DEPAKENE [VALPROATE SODIUM] [Concomitant]
     Active Substance: VALPROATE SODIUM
     Indication: PRODUCT USED FOR UNKNOWN INDICATION
     Dosage: 10 MG DAILY
     Route: 048
  10. VIMPAT [Suspect]
     Active Substance: LACOSAMIDE
     Dosage: 200MG DAILY
     Route: 048
     Dates: start: 20200722, end: 2020
  11. FYCOMPA [Concomitant]
     Active Substance: PERAMPANEL
     Indication: PRODUCT USED FOR UNKNOWN INDICATION
     Dosage: 2 MG DAILY
     Dates: start: 20200902
  12. PIPERACILLIN AND TAZOBACTAM [Concomitant]
     Active Substance: PIPERACILLIN SODIUM\TAZOBACTAM SODIUM
     Indication: PRODUCT USED FOR UNKNOWN INDICATION
     Dosage: UNK

REACTIONS (27)
  - Haematuria [Unknown]
  - Urinary tract infection [Unknown]
  - Drug-induced liver injury [Unknown]
  - Cerebral palsy [Unknown]
  - Cystitis bacterial [Unknown]
  - Hyperglycaemia [Unknown]
  - Pneumonia [Unknown]
  - Dehydration [Unknown]
  - Hyperammonaemia [Unknown]
  - Adverse reaction [Unknown]
  - Osteoporosis [Unknown]
  - Hydronephrosis [Unknown]
  - Aspartate aminotransferase increased [Recovering/Resolving]
  - Pyrexia [Recovering/Resolving]
  - Cerumen impaction [Unknown]
  - Alanine aminotransferase increased [Recovering/Resolving]
  - Hypoxia [Unknown]
  - Insomnia [Unknown]
  - Asteatosis [Unknown]
  - Metabolic acidosis [Unknown]
  - Lennox-Gastaut syndrome [Unknown]
  - Constipation [Unknown]
  - Eczema [Unknown]
  - Dermatitis [Unknown]
  - Hepatic function abnormal [Unknown]
  - Hyperuricaemia [Unknown]
  - Anaemia [Unknown]

NARRATIVE: CASE EVENT DATE: 20200703
